FAERS Safety Report 21746708 (Version 1)
Quarter: 2022Q4

REPORT INFORMATION
  Report Type: Report from Study
  Country: US (occurrence: US)
  Receive Date: 20221219
  Receipt Date: 20221219
  Transmission Date: 20230112
  Serious: Yes (Other)
  Sender: FDA-Public Use
  Company Number: US-AUROBINDO-AUR-APL-2022-053262

PATIENT
  Sex: Female

DRUGS (2)
  1. HYDROXYCHLOROQUINE [Suspect]
     Active Substance: HYDROXYCHLOROQUINE
     Indication: Product used for unknown indication
     Dosage: 4.0?8.3 MG/KG DAILY DOSE BEFORE FOLLOW-UP
     Route: 065
  2. HYDROXYCHLOROQUINE [Suspect]
     Active Substance: HYDROXYCHLOROQUINE
     Dosage: 3.9?8.2 MG/KG DAILY DOSE DURING FOLLOW-UP
     Route: 065

REACTIONS (2)
  - Macular telangiectasia [Unknown]
  - Toxicity to various agents [Unknown]
